FAERS Safety Report 25560151 (Version 1)
Quarter: 2025Q3

REPORT INFORMATION
  Report Type: Spontaneous
  Country: US (occurrence: US)
  Receive Date: 20250715
  Receipt Date: 20250715
  Transmission Date: 20251020
  Serious: No
  Sender: NOVO NORDISK
  Company Number: US-NOVOPROD-1406626

PATIENT
  Age: 74 Year
  Sex: Female

DRUGS (1)
  1. OZEMPIC [Suspect]
     Active Substance: SEMAGLUTIDE
     Indication: Weight control
     Dosage: 2 MG, QW
     Route: 058
     Dates: start: 20240918

REACTIONS (13)
  - Malaise [Not Recovered/Not Resolved]
  - Malaise [Not Recovered/Not Resolved]
  - Overdose [Not Recovered/Not Resolved]
  - Overdose [Not Recovered/Not Resolved]
  - Dizziness [Not Recovered/Not Resolved]
  - Diarrhoea [Not Recovered/Not Resolved]
  - Abdominal discomfort [Not Recovered/Not Resolved]
  - Decreased appetite [Not Recovered/Not Resolved]
  - Dizziness [Unknown]
  - Fatigue [Unknown]
  - Wrong technique in product usage process [Unknown]
  - Product use in unapproved indication [Unknown]
  - Product communication issue [Unknown]

NARRATIVE: CASE EVENT DATE: 20240918
